FAERS Safety Report 6174451-1 (Version None)
Quarter: 2009Q2

REPORT INFORMATION
  Report Type: 
  Country: None (occurrence: None)
  Receive Date: 20090430
  Receipt Date: 20080611
  Transmission Date: 20091009
  Serious: No
  Sender: FDA-Public Use
  Company Number: US-ASTRAZENECA-2008UW11788

PATIENT
  Age: 75 Year
  Sex: Female
  Weight: 70.3 kg

DRUGS (3)
  1. NEXIUM [Suspect]
     Indication: DYSPEPSIA
     Route: 048
     Dates: start: 20040101
  2. MISOPROSTOL [Concomitant]
  3. PAMELOR [Concomitant]

REACTIONS (2)
  - GASTRIC POLYPS [None]
  - NEUROPATHY PERIPHERAL [None]
